FAERS Safety Report 16008380 (Version 2)
Quarter: 2019Q1

REPORT INFORMATION
  Report Type: Spontaneous
  Country: US (occurrence: US)
  Receive Date: 20190226
  Receipt Date: 20190313
  Transmission Date: 20190418
  Serious: Yes (Other)
  Sender: FDA-Public Use
  Company Number: US-AKORN PHARMACEUTICALS-2019AKN00343

PATIENT
  Age: 20 Year
  Sex: Male
  Weight: 78.01 kg

DRUGS (8)
  1. CLARAVIS [Suspect]
     Active Substance: ISOTRETINOIN
     Indication: ACNE
     Dosage: UNK
     Dates: start: 20180312, end: 201901
  2. MYORISAN [Suspect]
     Active Substance: ISOTRETINOIN
     Indication: SCAR
  3. MYORISAN [Suspect]
     Active Substance: ISOTRETINOIN
     Indication: ACNE
     Dosage: 30 MG, 1X/DAY
     Route: 048
     Dates: start: 20180914, end: 201901
  4. MYORISAN [Suspect]
     Active Substance: ISOTRETINOIN
     Indication: SCAR
  5. MYORISAN [Suspect]
     Active Substance: ISOTRETINOIN
     Indication: ACNE
     Dosage: UNK
     Dates: start: 20161220
  6. CLARAVIS [Suspect]
     Active Substance: ISOTRETINOIN
     Indication: SCAR
  7. CLARAVIS [Suspect]
     Active Substance: ISOTRETINOIN
     Indication: ACNE
     Dosage: 30 MG, 1X/DAY
     Route: 048
     Dates: start: 20180523, end: 201901
  8. CLARAVIS [Suspect]
     Active Substance: ISOTRETINOIN
     Indication: SCAR

REACTIONS (4)
  - Off label use [Recovered/Resolved]
  - Depression [Recovered/Resolved]
  - Tinnitus [Unknown]
  - Depressed mood [Recovered/Resolved]

NARRATIVE: CASE EVENT DATE: 20180914
